FAERS Safety Report 24147620 (Version 2)
Quarter: 2024Q4

REPORT INFORMATION
  Report Type: Spontaneous
  Country: CA (occurrence: CA)
  Receive Date: 20240729
  Receipt Date: 20241121
  Transmission Date: 20250115
  Serious: Yes (Life-Threatening, Other)
  Sender: BRACCO
  Company Number: CA-BRACCO-2024CA04497

PATIENT
  Age: 74 Year
  Sex: Male

DRUGS (9)
  1. SULFUR HEXAFLUORIDE [Suspect]
     Active Substance: SULFUR HEXAFLUORIDE
     Indication: Ultrasound scan
     Dosage: 1.5 ML, SINGLE
     Route: 042
  2. SULFUR HEXAFLUORIDE [Suspect]
     Active Substance: SULFUR HEXAFLUORIDE
     Indication: Ultrasound scan
     Dosage: 1.5 ML, SINGLE
     Route: 042
  3. SULFUR HEXAFLUORIDE [Suspect]
     Active Substance: SULFUR HEXAFLUORIDE
     Indication: Ultrasound scan
     Dosage: 1.5 ML, SINGLE
     Route: 042
  4. ATENOLOL [Concomitant]
     Active Substance: ATENOLOL
     Dosage: UNK
  5. COLCHICINE [Concomitant]
     Active Substance: COLCHICINE
  6. ENTRESTO [Concomitant]
     Active Substance: SACUBITRIL\VALSARTAN
  7. FUROSEMIDE [Concomitant]
     Active Substance: FUROSEMIDE
  8. JARDIANCE [Concomitant]
     Active Substance: EMPAGLIFLOZIN
  9. SPIRONOLACTONE [Concomitant]
     Active Substance: SPIRONOLACTONE

REACTIONS (7)
  - Unresponsive to stimuli [Recovered/Resolved]
  - Resuscitation [Recovered/Resolved]
  - Pulseless electrical activity [Recovered/Resolved]
  - Hypotension [Recovered/Resolved]
  - Flushing [Recovered/Resolved]
  - Feeling hot [Recovered/Resolved]
  - Chest pain [Recovered/Resolved]
